FAERS Safety Report 10544618 (Version 3)
Quarter: 2015Q4

REPORT INFORMATION
  Report Type: Report from Study
  Country: US (occurrence: US)
  Receive Date: 20141027
  Receipt Date: 20151012
  Transmission Date: 20160304
  Serious: Yes (Hospitalization)
  Sender: FDA-Public Use
  Company Number: US-GLAXOSMITHKLINE-Z0022741C

PATIENT
  Age: 35 Year
  Sex: Male
  Weight: 73.7 kg

DRUGS (5)
  1. TRAMETINIB TABLET [Suspect]
     Active Substance: TRAMETINIB
     Indication: COLORECTAL CANCER
     Dosage: 2 MG, QD
     Route: 048
     Dates: start: 20140522
  2. DABRAFENIB CAPSULE [Suspect]
     Active Substance: DABRAFENIB
     Indication: COLORECTAL CANCER
     Dosage: 150 MG, BID
     Route: 048
     Dates: start: 20140522
  3. CLINDAMYCIN GEL [Concomitant]
     Indication: RASH
     Dosage: 1 APPLICATION(S), BID
     Route: 061
     Dates: start: 20140522, end: 20140919
  4. VANCOMYCIN [Concomitant]
     Active Substance: VANCOMYCIN
     Indication: INFECTION
     Dosage: 125 MG, QID
     Route: 048
     Dates: start: 20140617, end: 20140902
  5. PANITUMUMAB SOLUTION FOR INFUSION [Suspect]
     Active Substance: PANITUMUMAB
     Indication: COLORECTAL CANCER
     Dosage: UNK, CYC
     Route: 042
     Dates: start: 20140522

REACTIONS (1)
  - Chills [Recovered/Resolved]

NARRATIVE: CASE EVENT DATE: 20140707
